FAERS Safety Report 9263853 (Version 2)
Quarter: 2013Q2

REPORT INFORMATION
  Report Type: Spontaneous
  Country: US (occurrence: US)
  Receive Date: 20130430
  Receipt Date: 20130523
  Transmission Date: 20140414
  Serious: Yes (Other)
  Sender: FDA-Public Use
  Company Number: US-BAYER-2013-051793

PATIENT
  Sex: Female
  Weight: 60.77 kg

DRUGS (7)
  1. BETASERON [Suspect]
     Dosage: 0.25 MG, QOD
     Route: 058
  2. CALCIUM MAGNESIUM ZINC [Concomitant]
  3. VITAMIN C + E [Concomitant]
  4. ACIDOPHILUS [Concomitant]
  5. VITAMIN D3 [Concomitant]
  6. MULTIVITAMIN [Concomitant]
  7. EFFEXOR [Concomitant]

REACTIONS (2)
  - Multiple sclerosis relapse [Unknown]
  - Unevaluable event [Unknown]
